FAERS Safety Report 14701149 (Version 3)
Quarter: 2018Q3

REPORT INFORMATION
  Report Type: Spontaneous
  Country: IT (occurrence: IT)
  Receive Date: 20180330
  Receipt Date: 20180702
  Transmission Date: 20181010
  Serious: Yes (Hospitalization)
  Sender: FDA-Public Use
  Company Number: IT-GILEAD-2018-0329995

PATIENT
  Age: 68 Year
  Sex: Male

DRUGS (14)
  1. LAMIVUDINE. [Concomitant]
     Active Substance: LAMIVUDINE
  2. SOTALOL. [Concomitant]
     Active Substance: SOTALOL
  3. BACTRIM [Concomitant]
     Active Substance: SULFAMETHOXAZOLE\TRIMETHOPRIM
     Dosage: 3 DF, UNK
  4. ATORVASTATIN [Concomitant]
     Active Substance: ATORVASTATIN
  5. SOTALOL. [Concomitant]
     Active Substance: SOTALOL
  6. RANITIDINE. [Concomitant]
     Active Substance: RANITIDINE
  7. BACTRIM [Concomitant]
     Active Substance: SULFAMETHOXAZOLE\TRIMETHOPRIM
  8. ZYDELIG [Suspect]
     Active Substance: IDELALISIB
     Indication: CHRONIC LYMPHOCYTIC LEUKAEMIA
     Dosage: 2 DF, UNK
     Route: 048
     Dates: start: 20170201, end: 20180308
  9. ACICLOVIR [Concomitant]
     Active Substance: ACYCLOVIR
  10. ATORVASTATIN [Concomitant]
     Active Substance: ATORVASTATIN
  11. LAMIVUDINE. [Concomitant]
     Active Substance: LAMIVUDINE
  12. RANITIDINE. [Concomitant]
     Active Substance: RANITIDINE
  13. BACTRIM [Concomitant]
     Active Substance: SULFAMETHOXAZOLE\TRIMETHOPRIM
  14. ACICLOVIR [Concomitant]
     Active Substance: ACYCLOVIR

REACTIONS (3)
  - Generalised erythema [Unknown]
  - Diarrhoea [Unknown]
  - Transaminases increased [Unknown]

NARRATIVE: CASE EVENT DATE: 20180308
